FAERS Safety Report 8781027 (Version 2)
Quarter: 2012Q4

REPORT INFORMATION
  Report Type: 
  Country: US (occurrence: US)
  Receive Date: 20120914
  Receipt Date: 20121203
  Transmission Date: 20130627
  Serious: No
  Sender: FDA-Public Use
  Company Number: US-PFIZER INC-2012225480

PATIENT
  Age: 83 Year
  Sex: Female
  Weight: 63.49 kg

DRUGS (6)
  1. PERCOCET [Suspect]
     Indication: PAIN
     Dosage: UNK
     Dates: start: 2012, end: 2012
  2. LIDODERM [Suspect]
     Indication: PAIN
     Dosage: 5 %, UNK
  3. LIDODERM [Suspect]
     Dosage: UNK, daily
     Dates: start: 20120905, end: 201209
  4. TRAMADOL HYDROCHLORIDE [Concomitant]
     Indication: PAIN
     Dosage: 50 mg, UNK
  5. HYZAAR [Concomitant]
     Indication: BLOOD PRESSURE HIGH
     Dosage: 100/25 mg,daily
  6. CITALOPRAM [Concomitant]
     Indication: DEPRESSION
     Dosage: 20 mg, daily

REACTIONS (4)
  - Drug ineffective [Unknown]
  - Drug ineffective [Unknown]
  - Constipation [Unknown]
  - Diarrhoea [Unknown]
